FAERS Safety Report 8920098 (Version 2)
Quarter: 2013Q1

REPORT INFORMATION
  Report Type: Spontaneous
  Country: ES (occurrence: ES)
  Receive Date: 20121121
  Receipt Date: 20130107
  Transmission Date: 20140127
  Serious: Yes (Life-Threatening, Hospitalization, Other)
  Sender: FDA-Public Use
  Company Number: ES-BRISTOL-MYERS SQUIBB COMPANY-17123050

PATIENT
  Sex: Female

DRUGS (1)
  1. SPRYCEL [Suspect]
     Route: 048

REACTIONS (2)
  - Dysphagia [Unknown]
  - Drug administration error [Unknown]
